FAERS Safety Report 14594374 (Version 2)
Quarter: 2018Q2

REPORT INFORMATION
  Report Type: Spontaneous
  Country: US (occurrence: US)
  Receive Date: 20180302
  Receipt Date: 20180403
  Transmission Date: 20180711
  Serious: No
  Sender: FDA-Public Use
  Company Number: US-009507513-1803USA000269

PATIENT
  Age: 70 Year
  Sex: Female
  Weight: 90.7 kg

DRUGS (5)
  1. CALCIUM (UNSPECIFIED) [Concomitant]
     Active Substance: CALCIUM
     Dosage: UNK
  2. AMLODIPINE [Concomitant]
     Active Substance: AMLODIPINE BESYLATE
     Dosage: UNK
  3. IRON (UNSPECIFIED) [Concomitant]
     Active Substance: IRON
     Dosage: UNK
  4. NORVASC [Concomitant]
     Active Substance: AMLODIPINE BESYLATE
     Dosage: UNK
  5. ZEPATIER [Suspect]
     Active Substance: ELBASVIR\GRAZOPREVIR
     Indication: HEPATITIS C
     Dosage: STRENGTH: 100/50MG, ONE TABLET ONCE DAILY
     Route: 048
     Dates: start: 20171010, end: 2018

REACTIONS (3)
  - Pain in extremity [Recovering/Resolving]
  - Back pain [Not Recovered/Not Resolved]
  - Lymphoedema [Not Recovered/Not Resolved]

NARRATIVE: CASE EVENT DATE: 20171024
